FAERS Safety Report 18872917 (Version 1)
Quarter: 2021Q1

REPORT INFORMATION
  Report Type: Spontaneous
  Country: US (occurrence: US)
  Receive Date: 20210210
  Receipt Date: 20210210
  Transmission Date: 20210420
  Serious: Yes (Hospitalization)
  Sender: FDA-Public Use
  Company Number: None

PATIENT
  Age: 9 Year
  Sex: Female
  Weight: 74.25 kg

DRUGS (2)
  1. ZANTAC [Suspect]
     Active Substance: RANITIDINE HYDROCHLORIDE
     Indication: HAEMORRHAGE
     Route: 048
     Dates: start: 20101001, end: 20111101
  2. RANITIDINE. [Suspect]
     Active Substance: RANITIDINE

REACTIONS (2)
  - Retinal disorder [None]
  - Recalled product [None]

NARRATIVE: CASE EVENT DATE: 20101012
